FAERS Safety Report 7365557-X (Version None)
Quarter: 2011Q1

REPORT INFORMATION
  Report Type: 
  Country: None (occurrence: None)
  Receive Date: 20110322
  Receipt Date: 20110307
  Transmission Date: 20110831
  Serious: Yes (Hospitalization, Other)
  Sender: FDA-Public Use
  Company Number: US-BAYER-201026512NA

PATIENT
  Sex: Female
  Weight: 92.273 kg

DRUGS (3)
  1. IBUPROFEN [Concomitant]
  2. MULTI-VITAMIN [Concomitant]
  3. YAZ [Suspect]
     Indication: CONTRACEPTION
     Route: 048
     Dates: start: 20060401, end: 20080415

REACTIONS (5)
  - DEEP VEIN THROMBOSIS [None]
  - DYSPNOEA [None]
  - PULMONARY EMBOLISM [None]
  - FATIGUE [None]
  - CHEST DISCOMFORT [None]
